FAERS Safety Report 6058930-3 (Version None)
Quarter: 2009Q1

REPORT INFORMATION
  Report Type: 
  Country: None (occurrence: None)
  Receive Date: 20090130
  Receipt Date: 20090122
  Transmission Date: 20090719
  Serious: Yes (Hospitalization, Other)
  Sender: FDA-Public Use
  Company Number: US-PFIZER INC-2009159656

PATIENT
  Sex: Female

DRUGS (2)
  1. CELEBREX [Suspect]
     Indication: ARTHRITIS
     Dosage: 200 MG, UNK
     Dates: start: 20020630, end: 20030101
  2. BEXTRA [Suspect]
     Dosage: 20 MG, UNK
     Dates: start: 20020530, end: 20050401

REACTIONS (1)
  - CEREBROVASCULAR ACCIDENT [None]
